FAERS Safety Report 9213581 (Version 2)
Quarter: 2013Q2

REPORT INFORMATION
  Report Type: Spontaneous
  Country: JP (occurrence: JP)
  Receive Date: 20130405
  Receipt Date: 20130621
  Transmission Date: 20140414
  Serious: Yes (Other)
  Sender: FDA-Public Use
  Company Number: JP-PFIZER INC-2013107126

PATIENT
  Age: 80 Year
  Sex: Male

DRUGS (1)
  1. ZOSYN [Suspect]
     Dosage: 13.5 G, DAILY
     Route: 041
     Dates: start: 20130210, end: 20130225

REACTIONS (1)
  - Fanconi syndrome acquired [Recovering/Resolving]
